FAERS Safety Report 5316483-9 (Version None)
Quarter: 2007Q2

REPORT INFORMATION
  Report Type: 
  Country: None (occurrence: None)
  Receive Date: 20070504
  Receipt Date: 20070426
  Transmission Date: 20071010
  Serious: Yes (Hospitalization)
  Sender: FDA-Public Use
  Company Number: AU-BRISTOL-MYERS SQUIBB COMPANY-13682356

PATIENT
  Age: 54 Year
  Sex: Male

DRUGS (5)
  1. CETUXIMAB [Suspect]
     Indication: GASTROOESOPHAGEAL CANCER
     Route: 042
     Dates: start: 20070125
  2. DOCETAXEL [Suspect]
     Indication: GASTROOESOPHAGEAL CANCER
     Route: 042
     Dates: start: 20070125, end: 20070125
  3. VITAMIN CAP [Concomitant]
     Route: 048
     Dates: start: 20061015
  4. FEFOL [Concomitant]
     Route: 048
     Dates: start: 20061015
  5. ESOMEPRAZOLE MAGNESIUM [Concomitant]
     Indication: GASTROOESOPHAGEAL CANCER
     Route: 048
     Dates: start: 20061229

REACTIONS (2)
  - DEEP VEIN THROMBOSIS [None]
  - PNEUMOTHORAX [None]
